FAERS Safety Report 16600105 (Version 3)
Quarter: 2019Q3

REPORT INFORMATION
  Report Type: Spontaneous
  Country: FR (occurrence: FR)
  Receive Date: 20190719
  Receipt Date: 20190805
  Transmission Date: 20191004
  Serious: Yes (Death, Hospitalization)
  Sender: FDA-Public Use
  Company Number: FR-CELGENEUS-FRA-20190706329

PATIENT
  Age: 62 Year
  Sex: Male
  Weight: 88 kg

DRUGS (2)
  1. REVLIMID [Suspect]
     Active Substance: LENALIDOMIDE
     Indication: PLASMA CELL MYELOMA
     Dosage: 15 MILLIGRAM
     Route: 048
     Dates: start: 20180905, end: 20190610
  2. ASPIRINE PROTECT [Concomitant]
     Active Substance: ASPIRIN
     Indication: THROMBOSIS PROPHYLAXIS
     Dosage: 2400 MILLIGRAM
     Route: 048
     Dates: start: 20180905, end: 20190610

REACTIONS (1)
  - Haemorrhagic stroke [Fatal]

NARRATIVE: CASE EVENT DATE: 20190610
